FAERS Safety Report 9852746 (Version 1)
Quarter: 2014Q1

REPORT INFORMATION
  Report Type: Spontaneous
  Country: US (occurrence: US)
  Receive Date: 20140129
  Receipt Date: 20140129
  Transmission Date: 20141002
  Serious: Yes (Hospitalization, Disabling)
  Sender: FDA-Public Use
  Company Number: US-SA-2014SA011549

PATIENT
  Age: 80 Year
  Sex: Female

DRUGS (2)
  1. LANTUS [Suspect]
     Dosage: DOSE:75 UNIT(S)
     Route: 058
  2. APIDRA [Suspect]
     Dosage: DOSE:20 UNIT(S)
     Route: 058

REACTIONS (5)
  - Congestive cardiomyopathy [Not Recovered/Not Resolved]
  - Fall [Not Recovered/Not Resolved]
  - Meniscus injury [Not Recovered/Not Resolved]
  - Wheelchair user [Not Recovered/Not Resolved]
  - Adverse event [Not Recovered/Not Resolved]
